FAERS Safety Report 16711791 (Version 1)
Quarter: 2019Q3

REPORT INFORMATION
  Report Type: Spontaneous
  Country: FR (occurrence: FR)
  Receive Date: 20190816
  Receipt Date: 20190816
  Transmission Date: 20191004
  Serious: Yes (Hospitalization)
  Sender: FDA-Public Use
  Company Number: FR-MYLANLABS-2019M1074873

PATIENT
  Age: 80 Year
  Sex: Male
  Weight: 65 kg

DRUGS (2)
  1. METFORMIN [Suspect]
     Active Substance: METFORMIN HYDROCHLORIDE
     Indication: TYPE 2 DIABETES MELLITUS
     Dosage: 500MG-500MG-500 MG
     Route: 048
     Dates: start: 20190208, end: 20190215
  2. METFORMINE ARROW [Suspect]
     Active Substance: METFORMIN HYDROCHLORIDE
     Indication: TYPE 2 DIABETES MELLITUS
     Dosage: 500 MG-500 MG-500 MG
     Route: 048
     Dates: start: 20190216, end: 20190217

REACTIONS (4)
  - Respiratory distress [Recovering/Resolving]
  - Hypersensitivity [Recovering/Resolving]
  - Acquired macroglossia [Recovering/Resolving]
  - Rash [Recovering/Resolving]

NARRATIVE: CASE EVENT DATE: 20190216
